FAERS Safety Report 11986225 (Version 1)
Quarter: 2016Q1

REPORT INFORMATION
  Report Type: Report from Study
  Country: US (occurrence: US)
  Receive Date: 20160202
  Receipt Date: 20160202
  Transmission Date: 20160526
  Serious: Yes (Hospitalization)
  Sender: FDA-Public Use
  Company Number: US-ABBVIE-16K-163-1547113-00

PATIENT
  Sex: Male
  Weight: 83.08 kg

DRUGS (7)
  1. HUMIRA [Suspect]
     Active Substance: ADALIMUMAB
     Dosage: SINCE A LITTLE OVER A YEAR AGO
     Route: 058
     Dates: start: 2015
  2. PREDNISONE. [Suspect]
     Active Substance: PREDNISONE
     Indication: PERIPHERAL SWELLING
     Route: 048
  3. HUMIRA [Suspect]
     Active Substance: ADALIMUMAB
     Indication: CROHN^S DISEASE
     Route: 058
  4. MIRTAZAPINE. [Concomitant]
     Active Substance: MIRTAZAPINE
     Indication: SEDATIVE THERAPY
  5. DONEPEZIL. [Concomitant]
     Active Substance: DONEPEZIL
     Indication: DEMENTIA ALZHEIMER^S TYPE
  6. HUMIRA [Suspect]
     Active Substance: ADALIMUMAB
     Route: 058
     Dates: start: 201601
  7. HUMIRA [Suspect]
     Active Substance: ADALIMUMAB
     Dosage: FOR 9 MONTHS
     Route: 058
     Dates: start: 201503, end: 201512

REACTIONS (4)
  - Peripheral swelling [Recovering/Resolving]
  - Chondrocalcinosis pyrophosphate [Not Recovered/Not Resolved]
  - Drug effect incomplete [Recovering/Resolving]
  - Stoma site erythema [Recovered/Resolved]

NARRATIVE: CASE EVENT DATE: 2015
